FAERS Safety Report 24242335 (Version 1)
Quarter: 2024Q3

REPORT INFORMATION
  Report Type: Report from Study
  Country: CA (occurrence: CA)
  Receive Date: 20240823
  Receipt Date: 20240823
  Transmission Date: 20241017
  Serious: Yes (Other)
  Sender: JOHNSON AND JOHNSON
  Company Number: CA-JNJFOC-20240367790

PATIENT
  Age: 3 Decade
  Sex: Male
  Weight: 80 kg

DRUGS (3)
  1. REMICADE [Suspect]
     Active Substance: INFLIXIMAB
     Indication: Crohn^s disease
     Dosage: NEW DOSAGE WILL BE 800MG, 80KG X10=800MG
     Route: 041
     Dates: start: 20210128
  2. REMICADE [Suspect]
     Active Substance: INFLIXIMAB
     Dosage: NEW DOSAGE WILL BE 800MG, 80KG X10=800MG?EXPIRY DATE: DE-2026
     Route: 041
     Dates: start: 20210128
  3. POTASSIUM CITRATE [Concomitant]
     Active Substance: POTASSIUM CITRATE

REACTIONS (4)
  - Depression [Not Recovered/Not Resolved]
  - Weight decreased [Not Recovered/Not Resolved]
  - Pain [Not Recovered/Not Resolved]
  - Weight increased [Recovered/Resolved]

NARRATIVE: CASE EVENT DATE: 20240701
